FAERS Safety Report 4576862-4 (Version None)
Quarter: 2005Q1

REPORT INFORMATION
  Report Type: 
  Country: None (occurrence: None)
  Receive Date: 20050207
  Receipt Date: 20050124
  Transmission Date: 20050727
  Serious: Yes (Other)
  Sender: FDA-Public Use
  Company Number: 206677

PATIENT
  Age: 68 Year
  Sex: Female
  Weight: 71.2147 kg

DRUGS (3)
  1. AVONEX [Suspect]
     Dosage: 30 UG;QW;IM
     Route: 030
     Dates: end: 20040101
  2. AVONEX [Suspect]
     Dosage: 30 UG;QW;IM
     Route: 030
     Dates: start: 20010101
  3. AVONEX [Suspect]
     Dosage: 30 UG;QW;IM
     Route: 030
     Dates: start: 20040401

REACTIONS (3)
  - ASTHENIA [None]
  - BREAST CANCER FEMALE [None]
  - METASTASES TO LYMPH NODES [None]
